FAERS Safety Report 8926769 (Version 4)
Quarter: 2013Q2

REPORT INFORMATION
  Report Type: Spontaneous
  Country: JP (occurrence: JP)
  Receive Date: 20121127
  Receipt Date: 20130520
  Transmission Date: 20140414
  Serious: Yes (Life-Threatening, Other)
  Sender: FDA-Public Use
  Company Number: JP-ASTRAZENECA-2012SE88774

PATIENT
  Age: 41 Year
  Sex: Male

DRUGS (15)
  1. DIPRIVAN [Suspect]
     Indication: ANAESTHESIA
     Route: 042
     Dates: start: 20120619, end: 20120619
  2. MEROPEN [Suspect]
     Indication: SEPSIS
     Route: 065
     Dates: start: 20120620, end: 20120620
  3. FLUMARIN [Suspect]
     Indication: ANTIBIOTIC THERAPY
     Dates: start: 20120619, end: 20120619
  4. CEFMETAZOLE SODIUM [Suspect]
     Indication: ANTIBIOTIC PROPHYLAXIS
     Route: 065
     Dates: start: 20120620, end: 20120620
  5. FENTANYL [Concomitant]
     Indication: ANALGESIC THERAPY
     Route: 042
     Dates: start: 20120619, end: 20120619
  6. ULTIVA [Concomitant]
     Indication: ANALGESIC THERAPY
     Route: 042
     Dates: start: 20120619, end: 20120619
  7. ESLAX [Concomitant]
     Indication: MUSCLE RELAXANT THERAPY
     Route: 042
     Dates: start: 20120619, end: 20120619
  8. BRIDION [Concomitant]
     Indication: THERAPEUTIC PROCEDURE
     Route: 042
     Dates: start: 20120619, end: 20120619
  9. GASTER [Concomitant]
     Indication: HYPERCHLORHYDRIA
     Route: 042
     Dates: start: 20120619, end: 20120619
  10. ROPION [Concomitant]
     Indication: ANALGESIC THERAPY
     Route: 042
     Dates: start: 20120619, end: 20120619
  11. VANCOMYCIN [Concomitant]
     Indication: SEPSIS
     Dates: start: 20120620, end: 20120627
  12. MIRACLID [Concomitant]
     Indication: CIRCULATORY COLLAPSE
     Dosage: 300 IU (1,000S)/DAY
     Dates: start: 20120620, end: 20120621
  13. SOLU-CORTEF [Concomitant]
     Indication: ANAPHYLACTIC REACTION
     Dates: start: 20120620, end: 20120705
  14. NORADRENALINE [Concomitant]
     Indication: SHOCK
     Dates: start: 20120620, end: 20120623
  15. DOPAMINE [Concomitant]
     Indication: SHOCK
     Dates: start: 20120620, end: 20120622

REACTIONS (2)
  - Anaphylactic shock [Recovered/Resolved]
  - Septic shock [Recovered/Resolved]
